FAERS Safety Report 7762203-8 (Version None)
Quarter: 2011Q3

REPORT INFORMATION
  Report Type: 
  Country: None (occurrence: None)
  Receive Date: 20110920
  Receipt Date: 20110909
  Transmission Date: 20111222
  Serious: Yes (Hospitalization)
  Sender: FDA-Public Use
  Company Number: FR-ROCHE-790952

PATIENT
  Sex: Female
  Weight: 66 kg

DRUGS (12)
  1. EVEROLIMUS [Suspect]
     Dosage: DOSE REDUCED
     Route: 048
     Dates: start: 20110716, end: 20110719
  2. ATORVASTATIN CALCIUM [Concomitant]
  3. PREDNISOLONE [Suspect]
     Route: 048
     Dates: start: 20110517
  4. FERROUS SULFATE TAB [Concomitant]
  5. OMEPRAZOLE [Concomitant]
  6. MYCOPHENOLATE MOFETIL [Suspect]
     Route: 048
     Dates: start: 20110517
  7. BACTRIM [Concomitant]
     Route: 048
     Dates: start: 20110521, end: 20110716
  8. EVEROLIMUS [Suspect]
     Dosage: DOSE: 1.5 (UNITS NOT PROVIDED)
     Route: 048
     Dates: start: 20110628
  9. EVEROLIMUS [Suspect]
     Dosage: DOSE: 1.5 UNIT UNKNOWN
     Route: 048
     Dates: start: 20110701
  10. PREDNISOLONE [Suspect]
     Route: 048
     Dates: start: 20110716
  11. MYCOPHENOLATE MOFETIL [Suspect]
     Dosage: DOSE REDUCED
     Route: 048
     Dates: start: 20110716
  12. TENORMIN [Concomitant]

REACTIONS (3)
  - FEBRILE NEUTROPENIA [None]
  - APHTHOUS STOMATITIS [None]
  - WHITE BLOOD CELL COUNT DECREASED [None]
